FAERS Safety Report 22637128 (Version 2)
Quarter: 2023Q2

REPORT INFORMATION
  Report Type: Spontaneous
  Country: CN (occurrence: CN)
  Receive Date: 20230626
  Receipt Date: 20230628
  Transmission Date: 20230721
  Serious: Yes (Hospitalization, Other)
  Sender: FDA-Public Use
  Company Number: CN-009507513-2306CHN011619

PATIENT
  Age: 87 Year
  Sex: Female
  Weight: 66 kg

DRUGS (7)
  1. JANUVIA [Suspect]
     Active Substance: SITAGLIPTIN PHOSPHATE
     Indication: Type 2 diabetes mellitus
     Dosage: 100 MG, QD
     Route: 048
     Dates: start: 20230610, end: 20230619
  2. GLIMEPIRIDE [Suspect]
     Active Substance: GLIMEPIRIDE
     Indication: Type 2 diabetes mellitus
     Dosage: 2 MG, QD
     Route: 048
     Dates: end: 20230611
  3. METFORMIN HYDROCHLORIDE [Suspect]
     Active Substance: METFORMIN HYDROCHLORIDE
     Indication: Type 2 diabetes mellitus
     Dosage: 0.25 GRAM, TID
     Route: 048
     Dates: start: 20230612, end: 20230619
  4. BISOPROLOL FUMARATE [Concomitant]
     Active Substance: BISOPROLOL FUMARATE
     Indication: Coronary artery disease
     Dosage: 5 MILLIGRAM, QD
     Route: 048
  5. CLOPIDOGREL BISULFATE [Concomitant]
     Active Substance: CLOPIDOGREL BISULFATE
     Indication: Coronary artery disease
     Dosage: 75 MG, QD
     Route: 048
  6. TRIMETAZIDINE [Concomitant]
     Active Substance: TRIMETAZIDINE
     Indication: Coronary artery disease
     Dosage: 35 MG, QD
     Route: 048
  7. PIPERACILLIN SODIUM\TAZOBACTAM SODIUM [Concomitant]
     Active Substance: PIPERACILLIN SODIUM\TAZOBACTAM SODIUM
     Indication: Urinary tract infection
     Dosage: 4.5 G, Q12H
     Route: 041

REACTIONS (8)
  - Hypoglycaemia [Recovering/Resolving]
  - Cerebral ischaemia [Recovering/Resolving]
  - Diabetes mellitus inadequate control [Unknown]
  - Type 2 diabetes mellitus [Unknown]
  - Nephrolithiasis [Unknown]
  - Coronary artery disease [Unknown]
  - Urinary tract infection [Unknown]
  - Renal cyst [Unknown]

NARRATIVE: CASE EVENT DATE: 20230611
